FAERS Safety Report 10311098 (Version 1)
Quarter: 2014Q3

REPORT INFORMATION
  Report Type: Spontaneous
  Country: JP (occurrence: None)
  Receive Date: 20140714
  Receipt Date: 20140714
  Transmission Date: 20150326
  Serious: Yes (Hospitalization)
  Sender: FDA-Public Use
  Company Number: IPC201407-000336

PATIENT
  Age: 78 Year
  Sex: Female

DRUGS (7)
  1. NICORANDIL (NICORANDIL) (NICORANDIL) [Concomitant]
  2. ATORVASTATIN (ATORVASTATIN) (ATORVASTATIN) [Concomitant]
     Active Substance: ATORVASTATIN
  3. ASPIRIN (ASPIRIN) (ASPIRIN) [Concomitant]
     Active Substance: ASPIRIN
  4. WARFARIN (WARFARIN) (WARFARIN) [Suspect]
     Active Substance: WARFARIN
     Indication: ATRIAL FIBRILLATION
     Dosage: 1.5 MG PER DAY
  5. NIFEDIPINE (NIFEDIPINE) (NIFEDIPINE) [Concomitant]
     Active Substance: NIFEDIPINE
  6. OLMESARTAN (OLMESARTAN) (OLMESARTAN) [Concomitant]
  7. AMLODIPINE BESILATE (AMLODIPINE) (AMLODIPINE) [Concomitant]

REACTIONS (8)
  - Coagulopathy [None]
  - Anaemia [None]
  - Leukocytosis [None]
  - Lip haemorrhage [None]
  - Adenoiditis [None]
  - Vitamin K deficiency [None]
  - Renal failure [None]
  - Pharyngitis [None]
